FAERS Safety Report 19010456 (Version 1)
Quarter: 2021Q1

REPORT INFORMATION
  Report Type: Spontaneous
  Country: US (occurrence: US)
  Receive Date: 20210315
  Receipt Date: 20210315
  Transmission Date: 20210420
  Serious: Yes (Life-Threatening)
  Sender: FDA-Public Use
  Company Number: None

PATIENT
  Age: 75 Year
  Sex: Male
  Weight: 118.84 kg

DRUGS (1)
  1. GADOTERATE MEGLUMINE (GADOTERATE MEGLUMINE) [Suspect]
     Active Substance: GADOTERATE MEGLUMINE
     Indication: METASTATIC MALIGNANT MELANOMA
     Route: 042
     Dates: start: 20210202, end: 20210202

REACTIONS (7)
  - Pharyngeal swelling [None]
  - Hypotension [None]
  - Dysphonia [None]
  - Cough [None]
  - Dyspnoea [None]
  - Anaphylactic reaction [None]
  - Wheezing [None]

NARRATIVE: CASE EVENT DATE: 20210202
